FAERS Safety Report 17724973 (Version 1)
Quarter: 2020Q2

REPORT INFORMATION
  Report Type: Spontaneous
  Country: US (occurrence: US)
  Receive Date: 20200429
  Receipt Date: 20200429
  Transmission Date: 20200714
  Serious: Yes (Other)
  Sender: FDA-Public Use
  Company Number: None

PATIENT
  Age: 9 Year
  Sex: Male
  Weight: 57.6 kg

DRUGS (5)
  1. CHILDREN^S MULTIVITAMIN [Concomitant]
  2. ELDERBERRY SYRUP [Concomitant]
     Active Substance: DIETARY SUPPLEMENT\HERBALS
  3. DEXTROAMPHET SACCHARAT, AMPHET ASPARTATE, DEXTROAMPHET SULFATE AND AMPHET SULFAT [Suspect]
     Active Substance: AMPHETAMINE ASPARTATE\AMPHETAMINE SULFATE\DEXTROAMPHETAMINE SACCHARATE\DEXTROAMPHETAMINE SULFATE
     Indication: ATTENTION DEFICIT HYPERACTIVITY DISORDER
     Route: 048
     Dates: start: 20200322, end: 20200330
  4. ADDERALL [Concomitant]
     Active Substance: AMPHETAMINE ASPARTATE\AMPHETAMINE SULFATE\DEXTROAMPHETAMINE SACCHARATE\DEXTROAMPHETAMINE SULFATE
  5. FISH OIL PILLS [Concomitant]

REACTIONS (3)
  - Therapeutic response decreased [None]
  - Product substitution issue [None]
  - Peripheral coldness [None]

NARRATIVE: CASE EVENT DATE: 20200327
